FAERS Safety Report 8031653-7 (Version None)
Quarter: 2012Q1

REPORT INFORMATION
  Report Type: 
  Country: None (occurrence: None)
  Receive Date: 20120109
  Receipt Date: 20120105
  Transmission Date: 20120608
  Serious: Yes (Hospitalization)
  Sender: FDA-Public Use
  Company Number: US-CELGENEUS-163-21880-11100096

PATIENT
  Sex: Male

DRUGS (7)
  1. REVLIMID [Suspect]
     Indication: AMYLOIDOSIS
     Dosage: 15 MILLIGRAM
     Route: 048
     Dates: start: 20110613, end: 20110801
  2. FUROSEMIDE [Concomitant]
     Dosage: 40 MILLIGRAM
     Route: 065
     Dates: start: 20110726
  3. ALLOPURINOL [Concomitant]
     Indication: GOUT
     Dosage: 300 MILLIGRAM
     Route: 065
     Dates: start: 20110224
  4. CARVEDILOL [Concomitant]
     Indication: HYPERTENSION
     Dosage: 3.125 MILLIGRAM
     Route: 065
     Dates: start: 20110723
  5. METOLAZONE [Concomitant]
     Dosage: 2.5 MILLIGRAM
     Route: 065
     Dates: start: 20111025
  6. REVLIMID [Suspect]
     Dosage: 10 MILLIGRAM
     Route: 048
     Dates: start: 20110901, end: 20110901
  7. GLIPIZIDE [Concomitant]
     Dosage: 2.5 MILLIGRAM
     Route: 065
     Dates: start: 20100211

REACTIONS (1)
  - RESTRICTIVE CARDIOMYOPATHY [None]
